FAERS Safety Report 9287013 (Version 1)
Quarter: 2013Q2

REPORT INFORMATION
  Report Type: Spontaneous
  Country: US (occurrence: US)
  Receive Date: 20130513
  Receipt Date: 20130513
  Transmission Date: 20140414
  Serious: Yes (Other)
  Sender: FDA-Public Use
  Company Number: US-TEVA-403805USA

PATIENT
  Age: 90 Year
  Sex: Female

DRUGS (1)
  1. RISPERIDONE [Suspect]
     Route: 065

REACTIONS (2)
  - Dyskinesia [Recovered/Resolved]
  - Withdrawal syndrome [Recovered/Resolved]
